FAERS Safety Report 9498189 (Version 2)
Quarter: 2013Q3

REPORT INFORMATION
  Report Type: Spontaneous
  Country: US (occurrence: US)
  Receive Date: 20130904
  Receipt Date: 20130904
  Transmission Date: 20140515
  Serious: No
  Sender: FDA-Public Use
  Company Number: US-AMGEN-USASP2013039152

PATIENT
  Age: 35 Year
  Sex: Male

DRUGS (2)
  1. ENBREL [Suspect]
     Indication: RHEUMATOID ARTHRITIS
     Dosage: 50 MG, QWK
     Route: 065
     Dates: start: 20020701, end: 201308
  2. ENBREL [Suspect]
     Dosage: UNK
     Route: 065

REACTIONS (6)
  - Pyrexia [Recovered/Resolved]
  - Productive cough [Recovered/Resolved]
  - Arthralgia [Not Recovered/Not Resolved]
  - Pain in extremity [Not Recovered/Not Resolved]
  - Influenza like illness [Recovered/Resolved]
  - Pain [Recovered/Resolved]
